FAERS Safety Report 5372723-1 (Version None)
Quarter: 2007Q2

REPORT INFORMATION
  Report Type: 
  Country: None (occurrence: None)
  Receive Date: 20070627
  Receipt Date: 20070615
  Transmission Date: 20071010
  Serious: Yes (Other)
  Sender: FDA-Public Use
  Company Number: LU-PFIZER INC-2007037498

PATIENT
  Sex: Male
  Weight: 58 kg

DRUGS (5)
  1. SUTENT [Suspect]
     Indication: RENAL CELL CARCINOMA STAGE UNSPECIFIED
     Route: 048
     Dates: start: 20070414, end: 20070504
  2. SUTENT [Suspect]
     Route: 048
  3. LUCRIN [Concomitant]
     Route: 030
  4. EUTHYROX [Concomitant]
     Route: 048
  5. TENORETIC 100 [Concomitant]
     Route: 048

REACTIONS (3)
  - BLOOD TEST ABNORMAL [None]
  - INTRAVASCULAR HAEMOLYSIS [None]
  - JAUNDICE [None]
